FAERS Safety Report 8154833-9 (Version None)
Quarter: 2012Q1

REPORT INFORMATION
  Report Type: 
  Country: None (occurrence: None)
  Receive Date: 20120221
  Receipt Date: 20120213
  Transmission Date: 20120608
  Serious: Yes (Other)
  Sender: FDA-Public Use
  Company Number: PHEH2012US003827

PATIENT
  Sex: Male

DRUGS (3)
  1. STEROIDS NOS [Concomitant]
  2. MYFORTIC [Suspect]
     Indication: RENAL TRANSPLANT
     Dosage: 360 MG, BID
  3. ANTIHYPERTENSIVE DRUGS [Concomitant]

REACTIONS (3)
  - MULTIPLE SCLEROSIS [None]
  - MIGRAINE [None]
  - NEURALGIA [None]
